FAERS Safety Report 7860361-8 (Version None)
Quarter: 2011Q4

REPORT INFORMATION
  Report Type: 
  Country: None (occurrence: None)
  Receive Date: 20111027
  Receipt Date: 20111015
  Transmission Date: 20120403
  Serious: Yes (Other)
  Sender: FDA-Public Use
  Company Number: US-ELI_LILLY_AND_COMPANY-US201110005265

PATIENT
  Sex: Female

DRUGS (3)
  1. CYMBALTA [Suspect]
     Indication: PAIN
     Dosage: 30 MG, QD
  2. LYRICA [Concomitant]
     Indication: PAIN
  3. EVISTA [Concomitant]
     Indication: OSTEOPENIA
     Dosage: UNK

REACTIONS (5)
  - ROAD TRAFFIC ACCIDENT [None]
  - SOMNAMBULISM [None]
  - CONVULSION [None]
  - POST-TRAUMATIC NECK SYNDROME [None]
  - SOMNOLENCE [None]
